FAERS Safety Report 10313954 (Version 1)
Quarter: 2014Q3

REPORT INFORMATION
  Report Type: Spontaneous
  Country: US (occurrence: US)
  Receive Date: 20140718
  Receipt Date: 20140718
  Transmission Date: 20150326
  Serious: No
  Sender: FDA-Public Use
  Company Number: US-009507513-1407USA003659

PATIENT
  Sex: Female
  Weight: 54.42 kg

DRUGS (1)
  1. IMPLANON [Suspect]
     Active Substance: ETONOGESTREL
     Indication: CONTRACEPTION
     Dosage: 1 IMPLANON ROD
     Route: 059
     Dates: start: 20110708

REACTIONS (2)
  - Implant site pain [Not Recovered/Not Resolved]
  - Menstruation delayed [Recovered/Resolved]
